FAERS Safety Report 7776261-8 (Version None)
Quarter: 2011Q3

REPORT INFORMATION
  Report Type: 
  Country: None (occurrence: None)
  Receive Date: 20110921
  Receipt Date: 20110921
  Transmission Date: 20111222
  Serious: Yes (Other)
  Sender: FDA-Public Use
  Company Number: None

PATIENT
  Age: 88 Year
  Sex: Female

DRUGS (1)
  1. ENBREL [Suspect]
     Dosage: 50 MG ONCE/WEEK SQ
     Route: 058
     Dates: start: 20110316, end: 20110401

REACTIONS (3)
  - INFECTION [None]
  - IMMUNE SYSTEM DISORDER [None]
  - SURGERY [None]
